FAERS Safety Report 6445589-6 (Version None)
Quarter: 2009Q4

REPORT INFORMATION
  Report Type: 
  Country: None (occurrence: None)
  Receive Date: 20091118
  Receipt Date: 20091118
  Transmission Date: 20100525
  Serious: Yes (Hospitalization)
  Sender: FDA-Public Use
  Company Number: None

PATIENT
  Sex: Female
  Weight: 89.18 kg

DRUGS (1)
  1. ERBITUX [Suspect]
     Dosage: 960 MG

REACTIONS (21)
  - ACID FAST BACILLI INFECTION [None]
  - BACTERAEMIA [None]
  - BLOOD ALBUMIN DECREASED [None]
  - BLOOD CREATININE INCREASED [None]
  - BLOOD GLUCOSE INCREASED [None]
  - BLOOD UREA INCREASED [None]
  - BODY TEMPERATURE INCREASED [None]
  - CATHETER CULTURE POSITIVE [None]
  - COMPUTERISED TOMOGRAM ABNORMAL [None]
  - CULTURE URINE POSITIVE [None]
  - DEVICE RELATED INFECTION [None]
  - GENITAL LESION [None]
  - HERNIA [None]
  - HYDRONEPHROSIS [None]
  - MEDICAL DEVICE COMPLICATION [None]
  - PROTEUS INFECTION [None]
  - SKIN BURNING SENSATION [None]
  - URINE OUTPUT DECREASED [None]
  - VAGINAL DISCHARGE [None]
  - VULVOVAGINAL BURNING SENSATION [None]
  - WOUND SECRETION [None]
